FAERS Safety Report 9753167 (Version 1)
Quarter: 2013Q4

REPORT INFORMATION
  Report Type: Spontaneous
  Country: US (occurrence: US)
  Receive Date: 20131213
  Receipt Date: 20131213
  Transmission Date: 20140711
  Serious: No
  Sender: FDA-Public Use
  Company Number: US-GILEAD-2010-0026783

PATIENT
  Sex: Female
  Weight: 66.22 kg

DRUGS (24)
  1. LETAIRIS [Suspect]
     Indication: PULMONARY ARTERIAL HYPERTENSION
     Route: 048
     Dates: start: 20100121
  2. ZOCOR [Concomitant]
  3. ASPIRIN [Concomitant]
  4. POTASSIUM CHLORIDE [Concomitant]
  5. LORTAB [Concomitant]
  6. VICODIN [Concomitant]
  7. COLCHICINE [Concomitant]
  8. TIZANADINE [Concomitant]
  9. KLONOPIN [Concomitant]
  10. DYAZIDE [Concomitant]
  11. AMBIEN [Concomitant]
  12. PREMARIN [Concomitant]
  13. ZYRTEC [Concomitant]
  14. NEURONTIN [Concomitant]
  15. SYNHROID [Concomitant]
  16. PROBENECID [Concomitant]
  17. ADVAIR [Concomitant]
  18. TOPROL [Concomitant]
  19. NEXIUM [Concomitant]
  20. LEXAPRO [Concomitant]
  21. OXYGEN [Concomitant]
  22. ZETIA [Concomitant]
  23. GLUCOSAMINE [Concomitant]
  24. CALCIUM [Concomitant]

REACTIONS (4)
  - Bladder dilatation [Unknown]
  - Local swelling [Unknown]
  - Constipation [Unknown]
  - Headache [Unknown]
